FAERS Safety Report 21884445 (Version 1)
Quarter: 2023Q1

REPORT INFORMATION
  Report Type: Spontaneous
  Country: US (occurrence: US)
  Receive Date: 20230119
  Receipt Date: 20230119
  Transmission Date: 20230417
  Serious: No
  Sender: FDA-Public Use
  Company Number: US-PFIZER INC-202300014843

PATIENT
  Age: 77 Year
  Sex: Female

DRUGS (4)
  1. PAXLOVID [Suspect]
     Active Substance: NIRMATRELVIR\RITONAVIR
     Indication: COVID-19 treatment
     Dosage: UNK
     Dates: start: 20230103, end: 20230108
  2. ROSTATIN [ROSUVASTATIN CALCIUM] [Concomitant]
     Dosage: UNK
     Dates: end: 20230103
  3. URSODIOL [Concomitant]
     Active Substance: URSODIOL
     Dosage: UNK (COMPOUNDED)
     Dates: end: 20230103
  4. LISINOPRIL [Concomitant]
     Active Substance: LISINOPRIL
     Dosage: UNK (CONTINUED TO TAKE DURING PAXLOVID)

REACTIONS (2)
  - COVID-19 [Unknown]
  - Disease recurrence [Unknown]

NARRATIVE: CASE EVENT DATE: 20230110
